FAERS Safety Report 21524752 (Version 2)
Quarter: 2022Q4

REPORT INFORMATION
  Report Type: Report from Study
  Country: BR (occurrence: BR)
  Receive Date: 20221030
  Receipt Date: 20221106
  Transmission Date: 20230113
  Serious: Yes (Death)
  Sender: FDA-Public Use
  Company Number: BR-JNJFOC-20220945925

PATIENT
  Age: 10 Decade
  Sex: Female
  Weight: 32 kg

DRUGS (1)
  1. SIMPONI [Suspect]
     Active Substance: GOLIMUMAB
     Indication: Rheumatoid arthritis
     Dosage: DISCONTINUED ON 21-SEPT-2022 (PSP DATABASE), 09-SEPT-2022 (INFORMATION DURING THE PREVIOUS CONTACT).
     Route: 058
     Dates: start: 20210504

REACTIONS (2)
  - Pneumonia [Fatal]
  - Emphysema [Fatal]
